FAERS Safety Report 4465851-6 (Version None)
Quarter: 2004Q3

REPORT INFORMATION
  Report Type: 
  Country: None (occurrence: None)
  Receive Date: 20040929
  Receipt Date: 20040929
  Transmission Date: 20050211
  Serious: Yes (Hospitalization)
  Sender: FDA-Public Use
  Company Number: None

PATIENT
  Age: 62 Year
  Sex: Male
  Weight: 63.4 kg

DRUGS (13)
  1. DILANTIN [Suspect]
     Indication: CONVULSION
     Dosage: 125 MG Q 8 HOURS ORAL
     Route: 048
     Dates: start: 20040512, end: 20040712
  2. ALBUTEROL/IPRATROPIUM [Concomitant]
  3. ASPIRIN [Concomitant]
  4. DIPHENHYDRAMINE HCL [Concomitant]
  5. DOCUSATE SODIUM [Concomitant]
  6. FELODIPINE [Concomitant]
  7. FERROUS SULFATE TAB [Concomitant]
  8. FOLIC ACID [Concomitant]
  9. MAGNESIUM HYDROXIDE TAB [Concomitant]
  10. RANITIDINE HCL [Concomitant]
  11. SODIUM CHLORIDE INJ [Concomitant]
  12. SERTRALINE HCL [Concomitant]
  13. SODIUM POLYSTYRENE SULFONATE [Concomitant]

REACTIONS (4)
  - DERMATITIS EXFOLIATIVE [None]
  - DRUG ERUPTION [None]
  - HAEMORRHAGIC STROKE [None]
  - PRURITUS [None]
